FAERS Safety Report 4846766-8 (Version None)
Quarter: 2005Q4

REPORT INFORMATION
  Report Type: 
  Country: None (occurrence: None)
  Receive Date: 20051206
  Receipt Date: 20050928
  Transmission Date: 20060501
  Serious: Yes (Hospitalization)
  Sender: FDA-Public Use
  Company Number: US-MERCK-0509USA04419

PATIENT
  Age: 72 Year
  Sex: Female
  Weight: 73 kg

DRUGS (6)
  1. VIOXX [Suspect]
     Route: 048
  2. NEURONTIN [Concomitant]
     Route: 048
  3. NEXIUM [Concomitant]
     Route: 048
  4. PLAQUENIL [Concomitant]
     Route: 048
  5. EFFEXOR XR [Concomitant]
     Route: 048
  6. FOSAMAX [Concomitant]
     Route: 048

REACTIONS (13)
  - ACUTE CORONARY SYNDROME [None]
  - ANAEMIA [None]
  - ARTHROPATHY [None]
  - CHEST PAIN [None]
  - CORONARY ARTERY DISEASE [None]
  - DIZZINESS POSTURAL [None]
  - GASTROINTESTINAL DISORDER [None]
  - HYPERCHOLESTEROLAEMIA [None]
  - HYPOKALAEMIA [None]
  - LABILE BLOOD PRESSURE [None]
  - MUSCULOSKELETAL CHEST PAIN [None]
  - MYOCARDIAL INFARCTION [None]
  - PALPITATIONS [None]
